FAERS Safety Report 21739114 (Version 1)
Quarter: 2022Q4

REPORT INFORMATION
  Report Type: Spontaneous
  Country: US (occurrence: None)
  Receive Date: 20221216
  Receipt Date: 20221216
  Transmission Date: 20230113
  Serious: Yes (Other)
  Sender: FDA-Public Use
  Company Number: US-ROCHE-3241056

PATIENT
  Age: 80 Year
  Sex: Male

DRUGS (2)
  1. VABYSMO [Suspect]
     Active Substance: FARICIMAB-SVOA
     Indication: Choroidal neovascularisation
     Route: 065
  2. VABYSMO [Suspect]
     Active Substance: FARICIMAB-SVOA
     Indication: Uveitis

REACTIONS (3)
  - Uveitis [Unknown]
  - Off label use [Unknown]
  - Vision blurred [Recovering/Resolving]

NARRATIVE: CASE EVENT DATE: 20221027
